FAERS Safety Report 5651592-6 (Version None)
Quarter: 2008Q1

REPORT INFORMATION
  Report Type: 
  Country: None (occurrence: None)
  Receive Date: 20080131
  Receipt Date: 20071220
  Transmission Date: 20080703
  Serious: No
  Sender: FDA-Public Use
  Company Number: US200711001986

PATIENT
  Age: 55 Year
  Sex: Male
  Weight: 68 kg

DRUGS (19)
  1. BYETTA [Suspect]
     Dosage: 10 UG, SUBCUTANEOUS; 5 UG, 4/D, SUBCUTANEOUS, 10 UG, 2/D, SUBCUTANEOUS
     Route: 058
     Dates: start: 20070901, end: 20070930
  2. BYETTA [Suspect]
     Dosage: 10 UG, SUBCUTANEOUS; 5 UG, 4/D, SUBCUTANEOUS, 10 UG, 2/D, SUBCUTANEOUS
     Route: 058
     Dates: start: 20070930, end: 20071015
  3. BYETTA [Suspect]
     Dosage: 10 UG, SUBCUTANEOUS; 5 UG, 4/D, SUBCUTANEOUS, 10 UG, 2/D, SUBCUTANEOUS
     Route: 058
     Dates: start: 20071015
  4. METFORMIN HCL [Concomitant]
  5. GLIMEPIRIDE [Concomitant]
  6. ALTACE [Concomitant]
  7. LOVASTATIN [Concomitant]
  8. COMMIT [Concomitant]
  9. CYMBALTA [Concomitant]
  10. ZYPREXA [Concomitant]
  11. LIDOCAINE [Concomitant]
  12. EXCEDRIN (MIGRAINE) [Concomitant]
  13. ASPIRIN [Concomitant]
  14. METHADONE HCL [Concomitant]
  15. VICODIN [Concomitant]
  16. XANAX [Concomitant]
  17. SEROQUEL [Concomitant]
  18. NEURONTIN [Concomitant]
  19. ANDROGEL [Concomitant]

REACTIONS (9)
  - BLOOD GLUCOSE INCREASED [None]
  - DECREASED APPETITE [None]
  - DISTURBANCE IN ATTENTION [None]
  - FATIGUE [None]
  - HEADACHE [None]
  - POLYURIA [None]
  - THIRST [None]
  - VISION BLURRED [None]
  - WEIGHT DECREASED [None]
